FAERS Safety Report 18973272 (Version 4)
Quarter: 2022Q1

REPORT INFORMATION
  Report Type: Report from Study
  Country: JP (occurrence: JP)
  Receive Date: 20210305
  Receipt Date: 20220124
  Transmission Date: 20220423
  Serious: Yes (Death, Other)
  Sender: FDA-Public Use
  Company Number: JP-OTSUKA-2021_006522

PATIENT
  Age: 77 Year
  Sex: Male
  Weight: 61.6 kg

DRUGS (3)
  1. PONATINIB [Suspect]
     Active Substance: PONATINIB
     Indication: Philadelphia positive acute lymphocytic leukaemia
     Dosage: 15 MILLIGRAM, QD
     Route: 048
     Dates: start: 20161228, end: 20170323
  2. PONATINIB [Suspect]
     Active Substance: PONATINIB
     Dosage: 30 MILLIGRAM, QD
     Route: 048
     Dates: start: 20170324, end: 20170403
  3. FILGRASTIM [Concomitant]
     Active Substance: FILGRASTIM
     Indication: Product used for unknown indication
     Dosage: UNK
     Route: 065
     Dates: start: 20161221

REACTIONS (1)
  - Philadelphia positive acute lymphocytic leukaemia [Fatal]

NARRATIVE: CASE EVENT DATE: 20170306
